FAERS Safety Report 5327983-X (Version None)
Quarter: 2007Q2

REPORT INFORMATION
  Report Type: 
  Country: None (occurrence: None)
  Receive Date: 20070517
  Receipt Date: 20070508
  Transmission Date: 20071010
  Serious: Yes (Other)
  Sender: FDA-Public Use
  Company Number: US-PFIZER INC-2007037995

PATIENT
  Sex: Female
  Weight: 68.181 kg

DRUGS (5)
  1. CHANTIX [Suspect]
     Indication: SMOKING CESSATION THERAPY
     Dosage: DAILY DOSE:.5MG
  2. PRAVACHOL [Concomitant]
  3. GLYBURIDE [Concomitant]
  4. GLUCOPHAGE [Concomitant]
  5. LISINOPRIL [Concomitant]

REACTIONS (1)
  - BLOOD GLUCOSE INCREASED [None]
